FAERS Safety Report 14529179 (Version 1)
Quarter: 2018Q1

REPORT INFORMATION
  Report Type: Spontaneous
  Country: US (occurrence: US)
  Receive Date: 20180213
  Receipt Date: 20180213
  Transmission Date: 20180509
  Serious: Yes (Hospitalization)
  Sender: FDA-Public Use
  Company Number: None

PATIENT
  Age: 77 Year
  Sex: Male

DRUGS (15)
  1. ATORVASTATIN [Concomitant]
     Active Substance: ATORVASTATIN
  2. ROPINIROLE. [Concomitant]
     Active Substance: ROPINIROLE
  3. MULTI VIT [Concomitant]
  4. CLOPIDOGREL [Concomitant]
     Active Substance: CLOPIDOGREL BISULFATE
  5. NUPLAZID [Suspect]
     Active Substance: PIMAVANSERIN TARTRATE
     Indication: PARKINSON^S DISEASE
     Route: 048
     Dates: start: 20161104
  6. FLUDROCORT [Concomitant]
  7. CARB/LEVO [Concomitant]
     Active Substance: CARBIDOPA\LEVODOPA
  8. NUPLAZID [Suspect]
     Active Substance: PIMAVANSERIN TARTRATE
     Indication: HALLUCINATION
     Route: 048
     Dates: start: 20161104
  9. BENAZEPRIL [Concomitant]
     Active Substance: BENAZEPRIL HYDROCHLORIDE
  10. NORTHERA [Concomitant]
     Active Substance: DROXIDOPA
  11. JANUVIA [Concomitant]
     Active Substance: SITAGLIPTIN PHOSPHATE
  12. ESCITALOPRAM [Concomitant]
     Active Substance: ESCITALOPRAM OXALATE
  13. SELEGILINE [Concomitant]
     Active Substance: SELEGILINE
  14. ANTIBIOTIC OINTMENT [Concomitant]
     Active Substance: NEOMYCIN SULFATE
  15. GLIPIZIDE. [Concomitant]
     Active Substance: GLIPIZIDE

REACTIONS (1)
  - Hip fracture [None]

NARRATIVE: CASE EVENT DATE: 20180123
